FAERS Safety Report 8943142 (Version 1)
Quarter: 2012Q4

REPORT INFORMATION
  Report Type: 
  Country: None (occurrence: US)
  Receive Date: 20121204
  Receipt Date: 20121204
  Transmission Date: 20130627
  Serious: Yes (Death, Other)
  Sender: FDA-Public Use
  Company Number: US-COVIDIEN/TYCO HEALTHCARE/MALLINCKRODT-T201204191

PATIENT
  Age: 62 Year
  Sex: Male
  Weight: 77.1 kg

DRUGS (19)
  1. METHADOSE [Suspect]
     Indication: DRUG WITHDRAWAL MAINTENANCE THERAPY
     Dosage: 120 mg, qd
     Route: 048
     Dates: start: 20110829
  2. METHADOSE [Suspect]
     Dosage: 40 mg, qd
     Route: 048
     Dates: start: 20110627, end: 20110628
  3. METHADOSE [Suspect]
     Dosage: 50 mg, qd
     Route: 048
     Dates: start: 20110628, end: 20110706
  4. METHADOSE [Suspect]
     Dosage: 60 mg, qd
     Route: 048
     Dates: start: 20110706, end: 20110709
  5. METHADOSE [Suspect]
     Dosage: 65 mg, qd
     Route: 048
     Dates: start: 20110709, end: 20110711
  6. METHADOSE [Suspect]
     Dosage: 70 mg, qd
     Route: 048
     Dates: start: 20110711, end: 20110720
  7. METHADOSE [Suspect]
     Dosage: 75 mg, qd
     Route: 048
     Dates: start: 20110720, end: 20110722
  8. METHADOSE [Suspect]
     Dosage: 80 mg, qd
     Route: 048
     Dates: start: 20110722, end: 20110727
  9. METHADOSE [Suspect]
     Dosage: 85 mg, qd
     Route: 048
     Dates: start: 20110727, end: 20110730
  10. METHADOSE [Suspect]
     Dosage: 90 mg, qd
     Route: 048
     Dates: start: 20110730, end: 20110811
  11. METHADOSE [Suspect]
     Dosage: 100 mg, qd
     Route: 048
     Dates: start: 20110811, end: 20110818
  12. METHADOSE [Suspect]
     Dosage: 105 mg, qd
     Route: 048
     Dates: start: 20110818, end: 20110821
  13. METHADOSE [Suspect]
     Dosage: 110 mg, qd
     Route: 048
     Dates: start: 20110821, end: 20110826
  14. METHADOSE [Suspect]
     Dosage: 115 mg, qd
     Route: 048
     Dates: start: 20110826, end: 20110829
  15. TEMAZEPAM [Concomitant]
     Indication: INSOMNIA
     Dosage: 30 mg, UNK
  16. RIMROD [Concomitant]
     Indication: ANTIDEPRESSANT THERAPY
     Dosage: 45 mg, UNK
  17. MIRTAZAPINE [Concomitant]
     Dosage: 45 mg, UNK
  18. TRAMADOL [Concomitant]
     Indication: PAIN
     Dosage: 30 mg
  19. ASPIRIN [Concomitant]
     Indication: MIGRAINE
     Dosage: UNK

REACTIONS (13)
  - Death [Fatal]
  - Withdrawal syndrome [Recovered/Resolved]
  - Fatigue [Unknown]
  - Contusion [Unknown]
  - Decreased appetite [Unknown]
  - Fall [Recovered/Resolved]
  - Weight decreased [Unknown]
  - Back pain [Unknown]
  - Renal pain [Unknown]
  - Malaise [Unknown]
  - Pain [Unknown]
  - Dizziness [Unknown]
  - Headache [Unknown]
